FAERS Safety Report 25701316 (Version 1)
Quarter: 2025Q3

REPORT INFORMATION
  Report Type: Spontaneous
  Country: CN (occurrence: CN)
  Receive Date: 20250819
  Receipt Date: 20250819
  Transmission Date: 20251021
  Serious: Yes (Other)
  Sender: PFIZER
  Company Number: CN-PFIZER INC-PV202500099318

PATIENT
  Age: 36 Year
  Sex: Female
  Weight: 68 kg

DRUGS (1)
  1. HEMABATE [Suspect]
     Active Substance: CARBOPROST TROMETHAMINE
     Indication: Haemorrhage prophylaxis
     Dosage: 250 UG, 1X/DAY
     Route: 015
     Dates: start: 20250801, end: 20250801

REACTIONS (5)
  - Ventricular extrasystoles [Recovering/Resolving]
  - Chest discomfort [Recovering/Resolving]
  - Blood potassium decreased [Recovering/Resolving]
  - Off label use [Unknown]
  - Off label use [Unknown]

NARRATIVE: CASE EVENT DATE: 20250801
